FAERS Safety Report 5772938-4 (Version None)
Quarter: 2008Q2

REPORT INFORMATION
  Report Type: 
  Country: None (occurrence: None)
  Receive Date: 20080613
  Receipt Date: 20080602
  Transmission Date: 20081010
  Serious: Yes (Hospitalization)
  Sender: FDA-Public Use
  Company Number: JP-PFIZER INC-2008047055

PATIENT
  Age: 73 Year
  Sex: Male

DRUGS (9)
  1. VFEND [Suspect]
     Indication: MENINGITIS CRYPTOCOCCAL
     Dosage: DAILY DOSE:800MG
     Route: 048
  2. VFEND [Suspect]
     Dosage: DAILY DOSE:400MG
     Route: 048
     Dates: start: 20080530, end: 20080601
  3. POTASSIUM CHLORIDE [Concomitant]
  4. MAGNESIUM OXIDE [Concomitant]
     Route: 048
  5. LENDORMIN [Concomitant]
     Route: 048
  6. FAMOTIDINE [Concomitant]
  7. SLOW-K [Concomitant]
     Route: 048
  8. AMBISOME [Concomitant]
     Route: 042
  9. FLUCYTOSINE [Concomitant]
     Route: 048

REACTIONS (5)
  - BLOOD CREATINE PHOSPHOKINASE INCREASED [None]
  - C-REACTIVE PROTEIN INCREASED [None]
  - EYELID PTOSIS [None]
  - HEPATIC FUNCTION ABNORMAL [None]
  - MUSCULAR WEAKNESS [None]
